FAERS Safety Report 23520556 (Version 1)
Quarter: 2024Q1

REPORT INFORMATION
  Report Type: 
  Country: None (occurrence: None)
  Receive Date: 20240214
  Receipt Date: 20240214
  Transmission Date: 20240410
  Serious: No
  Sender: FDA-Public Use
  Company Number: JP-ROCHE-3335688

PATIENT
  Age: 44 Year
  Weight: 99.4 kg

DRUGS (47)
  1. TIRAGOLUMAB [Suspect]
     Active Substance: TIRAGOLUMAB
     Dosage: START DATE OF MOST RECENT DOSE OF STUDY DRUG PRIOR TO AE AND SAE WAS 04/APR/2023?START DATE OF MOST
     Dates: start: 20230404
  2. ATEZOLIZUMAB [Suspect]
     Active Substance: ATEZOLIZUMAB
     Dosage: START DATE OF MOST RECENT DOSE OF STUDY DRUG PRIOR TO SAE WAS 04/APR/2023?START DATE OF MOST RECENT
     Dates: start: 20230404
  3. CARBOPLATIN [Suspect]
     Active Substance: CARBOPLATIN
     Dosage: ON 20/JUL/2023, HE RECEIVED MOST RECENT DOSE OF CARBOPLATIN (562.5 MG) PRIOR TO AE/SAE.
     Dates: start: 20230404
  4. CARBOPLATIN [Suspect]
     Active Substance: CARBOPLATIN
     Dosage: START DATE OF MOST RECENT DOSE OF STUDY DRUG PRIOR TO SAE WAS 20/JUL/2023 (562.5 MG)
  5. PEMETREXED [Suspect]
     Active Substance: PEMETREXED
     Dosage: ON 21/DEC/2023, HE RECEIVED MOST RECENT DOSE OF PEMETREXED (733.12 MG) PRIOR TO AE/SAE.
     Dates: start: 20230404
  6. PEMETREXED [Suspect]
     Active Substance: PEMETREXED
     Dosage: START DATE OF MOST RECENT DOSE OF STUDY DRUG PRIOR TO SAE WAS 20/JUL/2023 (733.12 MG)
  7. OXYCODONE HYDROCHLORIDE [Concomitant]
     Active Substance: OXYCODONE HYDROCHLORIDE
     Dates: start: 20230328
  8. SYMPROIC [Concomitant]
     Active Substance: NALDEMEDINE
     Dates: start: 20230315
  9. TRAZODONE HCL [Concomitant]
     Active Substance: TRAZODONE HYDROCHLORIDE
     Dates: start: 20230309
  10. NEXIUM [Concomitant]
     Active Substance: ESOMEPRAZOLE MAGNESIUM
     Dates: start: 20230301
  11. LOXOPROFEN [Concomitant]
     Active Substance: LOXOPROFEN
  12. PREGABALIN [Concomitant]
     Active Substance: PREGABALIN
  13. CYMBALTA [Concomitant]
     Active Substance: DULOXETINE HYDROCHLORIDE
     Dates: start: 20230311
  14. LINZESS [Concomitant]
     Active Substance: LINACLOTIDE
     Dates: start: 20230318
  15. DAYVIGO [Concomitant]
     Active Substance: LEMBOREXANT
     Dates: start: 20230325, end: 20230413
  16. DAYVIGO [Concomitant]
     Active Substance: LEMBOREXANT
     Dates: start: 20230502
  17. LOXOPROFEN SODIUM [Concomitant]
     Active Substance: LOXOPROFEN SODIUM
     Dates: start: 20230331
  18. DECADRON [Concomitant]
     Active Substance: DEXAMETHASONE
     Dates: start: 20230405
  19. OXYCODONE HYDROCHLORIDE [Concomitant]
     Active Substance: OXYCODONE HYDROCHLORIDE
     Dates: start: 20230310
  20. METOCLOPRAMIDE [Concomitant]
     Active Substance: METOCLOPRAMIDE
     Dates: start: 20230405, end: 20230414
  21. SENNOSIDES [Concomitant]
     Active Substance: SENNOSIDES
     Dates: start: 20230407
  22. ALLOID G [Concomitant]
     Active Substance: SODIUM ALGINATE
     Dates: start: 20230408, end: 20230414
  23. CYANOCOBALAMIN [Concomitant]
     Active Substance: CYANOCOBALAMIN
     Dates: start: 20230329
  24. PALONOSETRON [Concomitant]
     Active Substance: PALONOSETRON
     Dates: start: 20230404
  25. DEXAMETHASONE SODIUM PHOSPHATE [Concomitant]
     Active Substance: DEXAMETHASONE PHOSPHATE\DEXAMETHASONE SODIUM PHOSPHATE
     Dates: start: 20230404
  26. FOSNETUPITANT CHLORIDE HYDROCHLORIDE [Concomitant]
     Active Substance: FOSNETUPITANT CHLORIDE HYDROCHLORIDE
     Dates: start: 20230404
  27. BETAMETHASONE BUTYRATE PROPIONATE [Concomitant]
     Active Substance: BETAMETHASONE BUTYRATE PROPIONATE
     Dates: start: 20230422, end: 20230428
  28. BETAMETHASONE BUTYRATE PROPIONATE [Concomitant]
     Active Substance: BETAMETHASONE BUTYRATE PROPIONATE
     Dates: start: 20230801
  29. ADONA [Concomitant]
     Dates: start: 20230428, end: 20230428
  30. CEFAZOLIN SODIUM [Concomitant]
     Active Substance: CEFAZOLIN SODIUM
     Dates: start: 20230428, end: 20230428
  31. HYDROXYZINE HYDROCHLORIDE [Concomitant]
     Active Substance: HYDROXYZINE HYDROCHLORIDE
     Dosage: PARENTERAL SOLUTION
     Dates: start: 20230428, end: 20230428
  32. BILASTINE [Concomitant]
     Active Substance: BILASTINE
     Dates: start: 20230422, end: 20230428
  33. SULFAMETHOXAZOLE\TRIMETHOPRIM [Concomitant]
     Active Substance: SULFAMETHOXAZOLE\TRIMETHOPRIM
     Dates: start: 20230508
  34. SODIUM PICOSULFATE [Concomitant]
     Active Substance: SODIUM PICOSULFATE
     Dates: start: 20230423, end: 20230423
  35. LEVOTHYROXINE [Concomitant]
     Active Substance: LEVOTHYROXINE\LEVOTHYROXINE SODIUM
     Dates: start: 20230627
  36. OLOPATADINE HYDROCHLORIDE [Concomitant]
     Active Substance: OLOPATADINE HYDROCHLORIDE
     Dates: start: 20230701
  37. OLOPATADINE HYDROCHLORIDE [Concomitant]
     Active Substance: OLOPATADINE HYDROCHLORIDE
     Dates: start: 20230801
  38. AMOXICILLIN [Concomitant]
     Active Substance: AMOXICILLIN
     Dates: start: 20230728, end: 20230730
  39. BENZETHONIUM CHLORIDE [Concomitant]
     Active Substance: BENZETHONIUM CHLORIDE
     Dates: start: 20230728
  40. BUTYLSCOPOLAMINE BROMIDE [Concomitant]
     Active Substance: BUTYLSCOPOLAMINE BROMIDE
     Dates: start: 20230818, end: 20230818
  41. MIDAZOLAM [Concomitant]
     Active Substance: MIDAZOLAM
     Dates: start: 20230818, end: 20230818
  42. GLYCERIN [Concomitant]
     Active Substance: GLYCERIN
     Dates: start: 20230818, end: 20230818
  43. CALONAL [Concomitant]
     Active Substance: ACETAMINOPHEN
     Dates: start: 20230831
  44. FUROSEMIDE [Concomitant]
     Active Substance: FUROSEMIDE
     Dates: start: 20230921
  45. SPIRONOLACTONE [Concomitant]
     Active Substance: SPIRONOLACTONE
     Dates: start: 20230928
  46. HEPARINOID [Concomitant]
     Dates: start: 20231019
  47. RINDERON VG [Concomitant]
     Active Substance: BETAMETHASONE VALERATE\GENTAMICIN SULFATE
     Dates: start: 20231012

REACTIONS (4)
  - Hepatic function abnormal [None]
  - Enteritis infectious [None]
  - Colitis [None]
  - Hepatic function abnormal [None]

NARRATIVE: CASE EVENT DATE: 20230417
